FAERS Safety Report 5817095-0 (Version None)
Quarter: 2008Q3

REPORT INFORMATION
  Report Type: 
  Country: None (occurrence: None)
  Receive Date: 20080722
  Receipt Date: 20080710
  Transmission Date: 20090109
  Serious: Yes (Other)
  Sender: FDA-Public Use
  Company Number: PHHY2008FR12538

PATIENT
  Sex: Female

DRUGS (6)
  1. ZOLEDRONIC ACID [Suspect]
     Indication: SPINAL COMPRESSION FRACTURE
     Dosage: UNK
     Dates: start: 20080515
  2. ATHYMIL [Concomitant]
  3. CORTANCYL [Concomitant]
  4. CALCIDOSE [Concomitant]
  5. ZESTRIL [Concomitant]
  6. HEMIGOXINE [Concomitant]

REACTIONS (4)
  - ABDOMINAL DISCOMFORT [None]
  - LABORATORY TEST ABNORMAL [None]
  - PANCREATIC CYST [None]
  - PANCREATITIS [None]
